FAERS Safety Report 21054609 (Version 2)
Quarter: 2022Q3

REPORT INFORMATION
  Report Type: Spontaneous
  Country: US (occurrence: None)
  Receive Date: 20220707
  Receipt Date: 20220729
  Transmission Date: 20221026
  Serious: No
  Sender: FDA-Public Use
  Company Number: 2022A216095

PATIENT
  Age: 70 Year
  Sex: Female

DRUGS (1)
  1. IMFINZI [Suspect]
     Active Substance: DURVALUMAB
     Indication: Non-small cell lung cancer stage III
     Dosage: UNKNOWN
     Route: 042
     Dates: end: 2022

REACTIONS (2)
  - Visual impairment [Not Recovered/Not Resolved]
  - Eyelid ptosis [Not Recovered/Not Resolved]

NARRATIVE: CASE EVENT DATE: 20220101
